FAERS Safety Report 7556290-X (Version None)
Quarter: 2011Q2

REPORT INFORMATION
  Report Type: 
  Country: None (occurrence: None)
  Receive Date: 20110620
  Receipt Date: 20110615
  Transmission Date: 20111010
  Serious: No
  Sender: FDA-Public Use
  Company Number: US-PFIZER INC-2011131548

PATIENT
  Sex: Male
  Weight: 95.2 kg

DRUGS (1)
  1. ADVIL PM [Suspect]
     Dosage: UNK
     Route: 048
     Dates: start: 20110615

REACTIONS (3)
  - SOMNOLENCE [None]
  - INCORRECT DOSE ADMINISTERED [None]
  - ACCIDENTAL OVERDOSE [None]
